FAERS Safety Report 8027615-6 (Version None)
Quarter: 2011Q4

REPORT INFORMATION
  Report Type: 
  Country: None (occurrence: None)
  Receive Date: 20111130
  Receipt Date: 20110523
  Transmission Date: 20120403
  Serious: Yes (Hospitalization, Other)
  Sender: FDA-Public Use
  Company Number: US200903003336

PATIENT
  Age: 47 Year
  Sex: Female
  Weight: 113.3993 kg

DRUGS (12)
  1. ZOLOFT [Concomitant]
  2. ALEVE [Concomitant]
  3. LIPITOR [Concomitant]
  4. EXENATIDE 5MCG PEN, DISPOSABLE DEVICE (EXENATIDE PEN (5MCG)) PEN, DISP [Concomitant]
  5. GLIPIZIDE [Concomitant]
  6. COZAAR [Concomitant]
  7. SLOW-FE (FERROUS SULFATE EXSICCATED) [Concomitant]
  8. FOLIC ACID [Concomitant]
  9. AXID [Concomitant]
  10. BYETTA [Suspect]
     Dosage: 5 UG, 2/D
     Dates: start: 20070401, end: 20070101
  11. LANTUS [Concomitant]
  12. METFORMIN (METFORMIN) UNK TO 08/03/2007 [Concomitant]

REACTIONS (4)
  - IMPAIRED GASTRIC EMPTYING [None]
  - OFF LABEL USE [None]
  - RENAL FAILURE CHRONIC [None]
  - PANCREATITIS [None]
